FAERS Safety Report 6318089-1 (Version None)
Quarter: 2009Q3

REPORT INFORMATION
  Report Type: 
  Country: None (occurrence: None)
  Receive Date: 20090820
  Receipt Date: 20090820
  Transmission Date: 20100115
  Serious: Yes (Life-Threatening, Hospitalization)
  Sender: FDA-Public Use
  Company Number: None

PATIENT
  Age: 65 Year
  Sex: Male

DRUGS (2)
  1. LISINOPRIL [Suspect]
     Indication: HYPERTENSION
     Dosage: 40 MG BID PO
     Route: 048
     Dates: start: 20090507, end: 20090629
  2. LISINOPRIL [Suspect]
     Dosage: 40 MG EVERY DAY PO
     Route: 048
     Dates: start: 20060203, end: 20090430

REACTIONS (10)
  - ANGIOEDEMA [None]
  - COUGH [None]
  - DYSPHAGIA [None]
  - LIP SWELLING [None]
  - OROPHARYNGEAL PAIN [None]
  - PALATAL OEDEMA [None]
  - PHARYNGEAL OEDEMA [None]
  - RALES [None]
  - SPEECH DISORDER [None]
  - WHEEZING [None]
